FAERS Safety Report 8924407 (Version 1)
Quarter: 2012Q4

REPORT INFORMATION
  Report Type: 
  Country: US (occurrence: US)
  Receive Date: 20121127
  Receipt Date: 20121127
  Transmission Date: 20130627
  Serious: Yes (Death, Hospitalization)
  Sender: FDA-Public Use
  Company Number: US-BAYER-US-2007-015857

PATIENT
  Age: 39 Year
  Sex: Female
  Weight: 74.83 kg

DRUGS (22)
  1. YASMIN [Suspect]
     Dosage: 1 tab(s), UNK
     Route: 048
     Dates: start: 20040902
  2. EXCEDRIN [Concomitant]
  3. IBUPROFEN [Concomitant]
     Indication: PAIN
  4. NORCO [Concomitant]
     Indication: PAIN
  5. LEXAPRO [Concomitant]
     Dosage: 10 mg, once a day
  6. PREVACID [Concomitant]
     Dosage: 30 mg, daily
  7. MIRAPEX [Concomitant]
  8. TORADOL [Concomitant]
     Indication: HEADACHE
     Dosage: 15 to 30 IV every four to six hours as needed
  9. PREDNISONE [Concomitant]
  10. ANTIVERT [Concomitant]
     Dosage: 25 po every six hours
  11. REGLAN [Concomitant]
  12. METHYLPREDNISOLONE [Concomitant]
     Dosage: on gram IV over 30 minutes
  13. ZYRTEC [Concomitant]
  14. PHENERGAN [Concomitant]
  15. MIGRAINE CAPSULE [Concomitant]
  16. MIDRIN [Concomitant]
  17. VICODIN [Concomitant]
  18. TYLENOL [Concomitant]
  19. COGENTIN [Concomitant]
  20. DIPRIVAN [Concomitant]
     Indication: SEIZURE LIKE PHENOMENA
  21. DECADRON [Concomitant]
  22. DILANTIN [Concomitant]

REACTIONS (3)
  - Cavernous sinus thrombosis [Fatal]
  - Headache [Fatal]
  - Vomiting [Fatal]
